FAERS Safety Report 9735513 (Version 1)
Quarter: 2013Q4

REPORT INFORMATION
  Report Type: Spontaneous
  Country: US (occurrence: US)
  Receive Date: 20131206
  Receipt Date: 20131206
  Transmission Date: 20140711
  Serious: No
  Sender: FDA-Public Use
  Company Number: US-GILEAD-2009-0023422

PATIENT
  Sex: Male
  Weight: 104.33 kg

DRUGS (16)
  1. LETAIRIS [Suspect]
     Indication: PULMONARY ARTERIAL HYPERTENSION
     Route: 048
     Dates: start: 20090710
  2. OXYGEN [Concomitant]
  3. FUROSEMIDE [Concomitant]
  4. REMODULIN [Concomitant]
  5. LYRICA [Concomitant]
  6. SPIRIVA [Concomitant]
  7. ADVAIR [Concomitant]
  8. NOVOLIN R [Concomitant]
  9. LANTUS [Concomitant]
  10. CARVEDILOL [Concomitant]
  11. COMPAZINE [Concomitant]
  12. OMEPRAZOLE [Concomitant]
  13. TRICOR [Concomitant]
  14. TEMAZEPAM [Concomitant]
  15. HYDROCODONE [Concomitant]
  16. ASPIRIN [Concomitant]

REACTIONS (6)
  - Dizziness [Recovering/Resolving]
  - Unevaluable event [Recovering/Resolving]
  - Vision blurred [Recovering/Resolving]
  - Fall [Recovering/Resolving]
  - Oedema [Recovering/Resolving]
  - Weight increased [Recovering/Resolving]
